FAERS Safety Report 15814693 (Version 1)
Quarter: 2019Q1

REPORT INFORMATION
  Report Type: Report from Study
  Country: US (occurrence: US)
  Receive Date: 20190111
  Receipt Date: 20190111
  Transmission Date: 20190417
  Serious: Yes (Death)
  Sender: FDA-Public Use
  Company Number: US-ACTELION-A-NJ2017-160734

PATIENT
  Age: 61 Year
  Sex: Female
  Weight: 133.79 kg

DRUGS (1)
  1. TRACLEER [Suspect]
     Active Substance: BOSENTAN
     Indication: PULMONARY HYPERTENSION
     Dosage: 125 MG, BID
     Route: 048

REACTIONS (18)
  - Death [Fatal]
  - Dyspnoea [Unknown]
  - Dizziness [Unknown]
  - Oedema [Unknown]
  - Fatigue [Unknown]
  - Respiratory tract infection [Unknown]
  - Feeling abnormal [Unknown]
  - Fluid retention [Unknown]
  - Cough [Unknown]
  - Throat irritation [Unknown]
  - Upper respiratory tract infection [Unknown]
  - Weight increased [Unknown]
  - Dysphonia [Unknown]
  - Nasopharyngitis [Unknown]
  - Dyspnoea exertional [Unknown]
  - Wheezing [Unknown]
  - Chest pain [Unknown]
  - Walking aid user [Unknown]

NARRATIVE: CASE EVENT DATE: 20181122
